FAERS Safety Report 5489168-6 (Version None)
Quarter: 2007Q4

REPORT INFORMATION
  Report Type: 
  Country: None (occurrence: None)
  Receive Date: 20071016
  Receipt Date: 20071004
  Transmission Date: 20080405
  Serious: Yes (Other)
  Sender: FDA-Public Use
  Company Number: 238537K07USA

PATIENT
  Age: 46 Year
  Sex: Female

DRUGS (1)
  1. REBIF [Suspect]
     Indication: MULTIPLE SCLEROSIS
     Dates: start: 19990719, end: 20070719

REACTIONS (4)
  - LUNG NEOPLASM MALIGNANT [None]
  - MICTURITION URGENCY [None]
  - PARAPLEGIA [None]
  - TREMOR [None]
